FAERS Safety Report 25866361 (Version 1)
Quarter: 2025Q3

REPORT INFORMATION
  Report Type: Spontaneous
  Country: MY (occurrence: MY)
  Receive Date: 20250930
  Receipt Date: 20250930
  Transmission Date: 20251020
  Serious: Yes (Hospitalization)
  Sender: ELI LILLY AND COMPANY
  Company Number: MY-ELI_LILLY_AND_COMPANY-MY202509025005

PATIENT
  Age: 49 Year
  Sex: Female

DRUGS (1)
  1. ABEMACICLIB [Suspect]
     Active Substance: ABEMACICLIB
     Indication: Breast cancer
     Route: 065
     Dates: start: 20250701

REACTIONS (1)
  - Hypertensive crisis [Unknown]

NARRATIVE: CASE EVENT DATE: 20250923
